FAERS Safety Report 5378139-6 (Version None)
Quarter: 2007Q3

REPORT INFORMATION
  Report Type: 
  Country: None (occurrence: None)
  Receive Date: 20070705
  Receipt Date: 20070622
  Transmission Date: 20080115
  Serious: Yes (Hospitalization)
  Sender: FDA-Public Use
  Company Number: PHBS2007ES10632

PATIENT
  Age: 18 Year
  Sex: Male

DRUGS (1)
  1. THIETHYLPERAZINE MALEATE [Suspect]
     Indication: VERTIGO
     Dosage: UNK, BID
     Route: 048

REACTIONS (5)
  - ANGIOEDEMA [None]
  - DYSKINESIA [None]
  - PARAESTHESIA ORAL [None]
  - PHARYNGEAL OEDEMA [None]
  - SWOLLEN TONGUE [None]
